FAERS Safety Report 4691985-7 (Version None)
Quarter: 2005Q2

REPORT INFORMATION
  Report Type: 
  Country: None (occurrence: None)
  Receive Date: 20050614
  Receipt Date: 20050601
  Transmission Date: 20051028
  Serious: Yes (Other)
  Sender: FDA-Public Use
  Company Number: SUS1-2005-00461

PATIENT

DRUGS (1)
  1. EQUETRO [Suspect]
     Route: 048

REACTIONS (2)
  - HYPERSENSITIVITY [None]
  - STEVENS-JOHNSON SYNDROME [None]
